FAERS Safety Report 9924360 (Version 5)
Quarter: 2014Q2

REPORT INFORMATION
  Report Type: Report from Study
  Country: AU (occurrence: AU)
  Receive Date: 20140226
  Receipt Date: 20140515
  Transmission Date: 20141212
  Serious: Yes (Hospitalization)
  Sender: FDA-Public Use
  Company Number: AU-ROCHE-1251845

PATIENT
  Age: 69 Year
  Sex: Female
  Weight: 49.3 kg

DRUGS (47)
  1. OBINUTUZUMAB [Suspect]
     Indication: NON-HODGKIN^S LYMPHOMA UNSPECIFIED HISTOLOGY INDOLENT
     Dosage: DOSE CONCENTRATION OF LAST GA101-4MG/ML?LAST DOSE PRIOR TO NON-ST SEGMENT ELEVATION MYOCARDIAL INFAR
     Route: 042
     Dates: start: 20130719
  2. BENDAMUSTINE [Suspect]
     Indication: NON-HODGKIN^S LYMPHOMA UNSPECIFIED HISTOLOGY INDOLENT
     Dosage: LAST DOSE, PRIOR TO NON-ST SEGMENT ELEVATION MYOCARDIAL INFARCTION ON19/JUL/2013 :140.4 MG.?LAST DOS
     Route: 042
     Dates: start: 20130719
  3. PREDNISOLONE [Suspect]
     Indication: NON-HODGKIN^S LYMPHOMA UNSPECIFIED HISTOLOGY INDOLENT
     Dosage: DOSE OF LAST PREDNISOLONE 100 MG.?LAST DOSE PRIOR TO SAE:19/JUL/2013
     Route: 042
  4. RAMIPRIL [Concomitant]
     Indication: MYOCARDIAL ISCHAEMIA
     Route: 065
  5. RAMIPRIL [Concomitant]
     Indication: HYPERTENSION
  6. NOVORAPID FLEXPEN [Concomitant]
     Indication: TYPE 1 DIABETES MELLITUS
     Route: 065
  7. LEVEMIR FLEXPEN [Concomitant]
     Indication: TYPE 1 DIABETES MELLITUS
     Route: 065
  8. ESTRADERM MX [Concomitant]
     Indication: HORMONE REPLACEMENT THERAPY
     Route: 065
     Dates: end: 20140219
  9. CARDIZEM CD [Concomitant]
     Indication: MYOCARDIAL ISCHAEMIA
     Route: 065
  10. PRAVASTATIN [Concomitant]
     Indication: MYOCARDIAL ISCHAEMIA
     Route: 065
  11. PARACETAMOL [Concomitant]
     Indication: HEADACHE
  12. PARACETAMOL [Concomitant]
     Indication: PAIN
  13. PSYLLIUM HYDROPHILIC MUCILLOID [Concomitant]
     Indication: CONSTIPATION PROPHYLAXIS
  14. FRUSEMIDE [Concomitant]
     Indication: FLUID OVERLOAD
  15. MINITRAN 15 [Concomitant]
     Indication: ANGINA PECTORIS
     Route: 065
  16. NITRAZEPAM [Concomitant]
  17. OXYCODONE [Concomitant]
     Indication: PAIN
  18. MICONAZOLE [Concomitant]
  19. PRIMOTESTON DEPOT [Concomitant]
     Route: 065
     Dates: start: 201307
  20. METOCLOPRAMIDE [Concomitant]
     Indication: NAUSEA
  21. METOCLOPRAMIDE [Concomitant]
     Indication: VOMITING
  22. SODIUM BICARBONATE [Concomitant]
     Dosage: MOUTHWASH
     Route: 065
     Dates: start: 20130719
  23. LORATADINE [Concomitant]
     Indication: PRURITUS
     Route: 065
     Dates: start: 20130719
  24. LORATADINE [Concomitant]
     Route: 065
     Dates: start: 20140217
  25. ONDANSETRON [Concomitant]
     Indication: NAUSEA
     Route: 065
     Dates: start: 20130720
  26. ONDANSETRON [Concomitant]
     Indication: VOMITING
     Route: 065
     Dates: start: 20140220, end: 20140220
  27. CANESTEN [Concomitant]
     Indication: VULVOVAGINAL CANDIDIASIS
     Route: 065
     Dates: start: 20130725
  28. CANESTEN [Concomitant]
     Route: 065
     Dates: start: 201311, end: 201311
  29. AMLODIPINE [Concomitant]
     Indication: MYOCARDIAL ISCHAEMIA
     Route: 065
     Dates: start: 20130723, end: 20140311
  30. CLOPIDOGREL [Concomitant]
     Indication: MYOCARDIAL ISCHAEMIA
     Route: 065
     Dates: start: 20130723, end: 20140430
  31. NEULASTA [Concomitant]
     Indication: NEUTROPENIA
     Route: 065
     Dates: start: 20140130, end: 20140130
  32. PROMETHAZINE [Concomitant]
     Indication: PRURITUS
     Route: 065
     Dates: start: 201402
  33. DIPROSONE [Concomitant]
     Indication: PRURITUS
     Route: 065
     Dates: start: 20140218
  34. ASPIRIN [Concomitant]
     Indication: MYOCARDIAL ISCHAEMIA
  35. NITROLINGUAL [Concomitant]
     Indication: ANGINA PECTORIS
  36. GRANISETRON HYDROCHLORIDE [Concomitant]
     Indication: NAUSEA
     Route: 065
     Dates: start: 20130719
  37. GRANISETRON HYDROCHLORIDE [Concomitant]
     Indication: VOMITING
  38. FLUCLOXACILLIN [Concomitant]
     Indication: CELLULITIS
     Route: 065
     Dates: start: 20140220, end: 20140227
  39. MIDAZOLAM ROCHE UNSPEC. [Concomitant]
     Route: 065
     Dates: start: 20140218, end: 20140218
  40. FENTANYL [Concomitant]
     Route: 065
     Dates: start: 20140218, end: 20140218
  41. LIGNOCAINE [Concomitant]
     Route: 065
     Dates: start: 20140218, end: 20140218
  42. CHLORVESCENT [Concomitant]
     Indication: HYPOKALAEMIA
     Route: 065
     Dates: start: 20140220, end: 20140220
  43. SANDOZ PHOSPHATE [Concomitant]
     Indication: HYPOPHOSPHATAEMIA
     Route: 065
     Dates: start: 20140220, end: 20140220
  44. SPAN K [Concomitant]
     Indication: HYPOKALAEMIA
     Route: 065
     Dates: start: 20140220, end: 20140220
  45. TEMAZEPAM [Concomitant]
     Indication: INSOMNIA
     Route: 065
     Dates: start: 20140219, end: 20140219
  46. PREGABALIN [Concomitant]
     Indication: PRURITUS
     Route: 065
     Dates: start: 201403, end: 201404
  47. PREGABALIN [Concomitant]
     Route: 065
     Dates: start: 201404

REACTIONS (2)
  - Acute myocardial infarction [Recovered/Resolved]
  - Acute myocardial infarction [Recovered/Resolved]
